FAERS Safety Report 4635899-7 (Version None)
Quarter: 2005Q2

REPORT INFORMATION
  Report Type: 
  Country: None (occurrence: None)
  Receive Date: 20050415
  Receipt Date: 20050405
  Transmission Date: 20051028
  Serious: Yes (Death)
  Sender: FDA-Public Use
  Company Number: IT-BRISTOL-MYERS SQUIBB COMPANY-12922951

PATIENT
  Age: 50 Year
  Sex: Male

DRUGS (4)
  1. ABILIFY [Suspect]
     Indication: DEPRESSION
     Dosage: INITIATED AT 15 MG/DAY; AFTER A FEW DAYS, TITRATED TO 30 MG/DAY.
     Dates: start: 20050302
  2. ABILIFY [Suspect]
     Indication: DELIRIUM
     Dosage: INITIATED AT 15 MG/DAY; AFTER A FEW DAYS, TITRATED TO 30 MG/DAY.
     Dates: start: 20050302
  3. ESCITALOPRAM [Concomitant]
  4. CLORDESMETHYLDIAZEPAM [Concomitant]

REACTIONS (1)
  - COMPLETED SUICIDE [None]
